FAERS Safety Report 8404134-6 (Version None)
Quarter: 2012Q2

REPORT INFORMATION
  Report Type: 
  Country: None (occurrence: None)
  Receive Date: 20120601
  Receipt Date: 20120523
  Transmission Date: 20120825
  Serious: Yes (Other)
  Sender: FDA-Public Use
  Company Number: JP-VERTEX PHARMACEUTICALS INC.-AE-2012-007777

PATIENT
  Age: 52 Year
  Sex: Female

DRUGS (6)
  1. DINAGEST [Concomitant]
     Route: 048
     Dates: start: 20111112
  2. PEG-INTRON [Concomitant]
     Route: 051
     Dates: start: 20120417, end: 20120417
  3. PEG-INTRON [Concomitant]
     Route: 051
     Dates: start: 20120424
  4. PEG-INTRON [Concomitant]
     Indication: HEPATITIS C
     Route: 051
     Dates: start: 20120403, end: 20120410
  5. RIBAVIRIN [Concomitant]
     Route: 048
     Dates: start: 20120403
  6. TELAVIC (TELAPREVIR) [Suspect]
     Indication: HEPATITIS C
     Route: 048
     Dates: start: 20120403

REACTIONS (1)
  - NEUTROPHIL COUNT DECREASED [None]
